APPROVED DRUG PRODUCT: METOPIRONE
Active Ingredient: METYRAPONE
Strength: 250MG
Dosage Form/Route: CAPSULE;ORAL
Application: N012911 | Product #002
Applicant: ESTEVE PHARMACEUTICALS SA
Approved: Aug 9, 1996 | RLD: Yes | RS: Yes | Type: RX